FAERS Safety Report 7683772-2 (Version None)
Quarter: 2011Q3

REPORT INFORMATION
  Report Type: 
  Country: None (occurrence: None)
  Receive Date: 20110815
  Receipt Date: 20110808
  Transmission Date: 20111222
  Serious: Yes (Disabling)
  Sender: FDA-Public Use
  Company Number: DK-BRACCO-000015

PATIENT
  Sex: Male

DRUGS (13)
  1. HALOPERIDOL [Concomitant]
  2. OMNISCAN [Suspect]
     Indication: NEPHRECTOMY
     Route: 042
     Dates: start: 20000905, end: 20000905
  3. OMNISCAN [Suspect]
     Indication: PYREXIA
     Route: 042
     Dates: start: 20021203, end: 20021203
  4. VITAMINS NOS [Concomitant]
  5. CONTRAST MEDIA [Suspect]
     Indication: NUCLEAR MAGNETIC RESONANCE IMAGING
     Route: 042
     Dates: start: 20010106, end: 20010106
  6. REMERON [Concomitant]
  7. NEORECORMON [Concomitant]
  8. LACTULOSE [Concomitant]
  9. CONTRAST MEDIA [Suspect]
     Indication: NEPHRECTOMY
     Route: 042
     Dates: start: 20010106, end: 20010106
  10. HALOPERIDOL [Concomitant]
  11. METOCLOPRAMIDE [Concomitant]
  12. OMNISCAN [Suspect]
     Indication: SCAN WITH CONTRAST
     Route: 042
     Dates: start: 20021203, end: 20021203
  13. QUININE SULFATE [Concomitant]

REACTIONS (15)
  - GAIT DISTURBANCE [None]
  - PAIN IN EXTREMITY [None]
  - MUSCULAR WEAKNESS [None]
  - RESTLESS LEGS SYNDROME [None]
  - GASTROOESOPHAGEAL REFLUX DISEASE [None]
  - OEDEMA [None]
  - NEPHROGENIC SYSTEMIC FIBROSIS [None]
  - DYSPEPSIA [None]
  - MOBILITY DECREASED [None]
  - MUSCULOSKELETAL PAIN [None]
  - DYSPNOEA [None]
  - FATIGUE [None]
  - ARTHRALGIA [None]
  - SKIN TIGHTNESS [None]
  - JOINT STIFFNESS [None]
